FAERS Safety Report 4984784-X (Version None)
Quarter: 2006Q2

REPORT INFORMATION
  Report Type: 
  Country: None (occurrence: None)
  Receive Date: 20060427
  Receipt Date: 20060420
  Transmission Date: 20061013
  Serious: Yes (Hospitalization, Other)
  Sender: FDA-Public Use
  Company Number: 2006PK00813

PATIENT
  Age: 28 Year
  Sex: Female

DRUGS (2)
  1. CARBOSTESIN 0.5 % HYPERBAR [Suspect]
     Indication: CAESAREAN SECTION
     Route: 008
     Dates: start: 20060412, end: 20060412
  2. FENTANYL [Suspect]
     Indication: CAESAREAN SECTION
     Route: 008
     Dates: start: 20060412, end: 20060412

REACTIONS (5)
  - BRADYCARDIA [None]
  - DELAYED RECOVERY FROM ANAESTHESIA [None]
  - DYSPNOEA [None]
  - PARAESTHESIA [None]
  - PARAPLEGIA [None]
